FAERS Safety Report 10403562 (Version 1)
Quarter: 2014Q3

REPORT INFORMATION
  Report Type: Spontaneous
  Country: CH (occurrence: CH)
  Receive Date: 20140822
  Receipt Date: 20140822
  Transmission Date: 20150326
  Serious: Yes (Congenital Anomaly)
  Sender: FDA-Public Use
  Company Number: CH-ABBVIE-14P-151-1274495-00

PATIENT
  Sex: Female

DRUGS (11)
  1. DEPAKINE CHRONO [Suspect]
     Active Substance: VALPROATE SODIUM
     Indication: MATERNAL EXPOSURE TIMING UNSPECIFIED
     Route: 064
  2. NOZINAN [Suspect]
     Active Substance: LEVOMEPROMAZINE
     Indication: MATERNAL EXPOSURE TIMING UNSPECIFIED
     Route: 064
  3. ZOPICLONE [Suspect]
     Active Substance: ZOPICLONE
     Indication: MATERNAL EXPOSURE TIMING UNSPECIFIED
     Route: 064
  4. ATARAX [Suspect]
     Active Substance: HYDROXYZINE\HYDROXYZINE HYDROCHLORIDE
     Indication: MATERNAL EXPOSURE TIMING UNSPECIFIED
     Route: 064
  5. TEMESTA [Suspect]
     Active Substance: LORAZEPAM
     Indication: MATERNAL EXPOSURE TIMING UNSPECIFIED
     Route: 064
  6. LEXOTANIL [Suspect]
     Active Substance: BROMAZEPAM
     Indication: MATERNAL EXPOSURE TIMING UNSPECIFIED
     Route: 064
  7. PRAVASTATIN SODIUM. [Suspect]
     Active Substance: PRAVASTATIN SODIUM
     Indication: MATERNAL EXPOSURE TIMING UNSPECIFIED
     Route: 064
  8. NEXIUM [Suspect]
     Active Substance: ESOMEPRAZOLE MAGNESIUM
     Indication: MATERNAL EXPOSURE TIMING UNSPECIFIED
     Route: 064
  9. TRAMADOL HYDROCHLORIDE. [Suspect]
     Active Substance: TRAMADOL HYDROCHLORIDE
     Indication: MATERNAL EXPOSURE TIMING UNSPECIFIED
     Route: 064
  10. PETHIDINE [Suspect]
     Active Substance: MEPERIDINE
     Indication: MATERNAL EXPOSURE TIMING UNSPECIFIED
     Route: 064
  11. STILNOX [Suspect]
     Active Substance: ZOLPIDEM TARTRATE
     Indication: MATERNAL EXPOSURE TIMING UNSPECIFIED
     Route: 064

REACTIONS (9)
  - Foetal growth restriction [Recovered/Resolved]
  - Neonatal behavioural syndrome [Not Recovered/Not Resolved]
  - Respiration abnormal [Not Recovered/Not Resolved]
  - Microcephaly [Not Recovered/Not Resolved]
  - Foetal exposure during pregnancy [Recovered/Resolved]
  - Neonatal hyponatraemia [Not Recovered/Not Resolved]
  - Premature baby [Recovered/Resolved]
  - Low set ears [Not Recovered/Not Resolved]
  - Hypotonia neonatal [Not Recovered/Not Resolved]

NARRATIVE: CASE EVENT DATE: 20130717
